FAERS Safety Report 9431950 (Version 2)
Quarter: 2014Q2

REPORT INFORMATION
  Report Type: Report from Study
  Country: US (occurrence: US)
  Receive Date: 20130731
  Receipt Date: 20140501
  Transmission Date: 20141212
  Serious: Yes (Hospitalization, Other)
  Sender: FDA-Public Use
  Company Number: PHEH2013US016078

PATIENT
  Age: 14 Year
  Sex: Male

DRUGS (1)
  1. TOBI [Suspect]
     Indication: PSEUDOMONAS INFECTION
     Dosage: 300 MG, BID (EVERY OTHER MONTH)
     Route: 055
     Dates: start: 201210

REACTIONS (5)
  - Pneumonia [Unknown]
  - Tracheitis [Unknown]
  - Infection [Unknown]
  - Oxygen saturation decreased [Unknown]
  - Sputum abnormal [Unknown]
